FAERS Safety Report 4799997-X (Version None)
Quarter: 2005Q4

REPORT INFORMATION
  Report Type: 
  Country: None (occurrence: None)
  Receive Date: 20051013
  Receipt Date: 20050930
  Transmission Date: 20060501
  Serious: Yes (Hospitalization, Other)
  Sender: FDA-Public Use
  Company Number: 2005088479

PATIENT
  Age: 79 Year
  Sex: Female

DRUGS (5)
  1. BEXTRA [Suspect]
     Indication: ARTHRALGIA
     Dosage: 40 MG (40 MG, 1 IN 1 D), ORAL
     Route: 048
     Dates: start: 20050401, end: 20050401
  2. SYNTHROID [Concomitant]
  3. ALDOMET [Concomitant]
  4. STANNOUS FLUORIDE (STANNOUS FLUORIDE) [Concomitant]
  5. LUFTAL (DIMETICONE) [Concomitant]

REACTIONS (10)
  - ABNORMAL BEHAVIOUR [None]
  - DIZZINESS [None]
  - DYSGEUSIA [None]
  - HALLUCINATION [None]
  - HYPERSOMNIA [None]
  - HYPOAESTHESIA [None]
  - INSOMNIA [None]
  - MUSCLE SPASMS [None]
  - THROMBOSIS [None]
  - URINARY TRACT INFECTION [None]
